FAERS Safety Report 9268836 (Version 2)
Quarter: 2013Q2

REPORT INFORMATION
  Report Type: Spontaneous
  Country: US (occurrence: US)
  Receive Date: 20130502
  Receipt Date: 20130530
  Transmission Date: 20140414
  Serious: Yes (Hospitalization, Other)
  Sender: FDA-Public Use
  Company Number: US-009507513-1304USA017333

PATIENT
  Sex: Female

DRUGS (3)
  1. CELESTONE SOLUSPAN [Suspect]
     Indication: OROPHARYNGEAL PAIN
     Dosage: UNK
     Route: 030
     Dates: start: 20110705, end: 20110705
  2. PROZAC [Concomitant]
  3. ADDERALL TABLETS [Concomitant]

REACTIONS (9)
  - Loss of consciousness [Not Recovered/Not Resolved]
  - Plastic surgery [Not Recovered/Not Resolved]
  - Rhinoplasty [Not Recovered/Not Resolved]
  - Feeling hot [Not Recovered/Not Resolved]
  - Dizziness [Not Recovered/Not Resolved]
  - Syncope [Not Recovered/Not Resolved]
  - Brain injury [Not Recovered/Not Resolved]
  - Facial bones fracture [Not Recovered/Not Resolved]
  - Contusion [Not Recovered/Not Resolved]
